FAERS Safety Report 18355577 (Version 1)
Quarter: 2020Q4

REPORT INFORMATION
  Report Type: Spontaneous
  Country: NL (occurrence: NL)
  Receive Date: 20201007
  Receipt Date: 20201007
  Transmission Date: 20210114
  Serious: Yes (Other)
  Sender: FDA-Public Use
  Company Number: NL-TEVA-2020-NL-1835783

PATIENT
  Age: 44 Year
  Sex: Female
  Weight: 76.8 kg

DRUGS (5)
  1. CICLESONIDE AEROSOL 160UG/DO / ALVESCO 160 AEROSOL 160MCG/DO SPBS  60D [Concomitant]
     Dosage: 160 MCG / DOSE,THERAPY START DATE : ASKU, THERAPY END DATE : ASKU
  2. SALBUTAMOL INHALATIEPOEDER 200UG/DO / VENTOLIN DISKUS INHPDR 200MCG 60 [Concomitant]
     Dosage: 200 MCG/DOSE, THERAPY START DATE : ASKU, THERAPY END DATE : ASKU
  3. FLUTICASON-FUROAAT NEUSSPRAY 27,5UG/DO / AVAMYS NEUSSPRAY 27,5MCG/DO F [Concomitant]
     Active Substance: FLUTICASONE
     Dosage: 27.5 MCG / DOSE THERAPY START DATE : ASKU, THERAPY END DATE : ASKU
     Route: 045
  4. AMLODIPINE TABLET 5MG / BRAND NAME NOT SPECIFIED [Suspect]
     Active Substance: AMLODIPINE BESYLATE
     Indication: HYPERTENSION
     Dosage: 5 MILLIGRAM DAILY;  THERAPY END DATE : ASKU
     Dates: start: 20200916
  5. EBASTINE SMELTTABLET 10MG / BRAND NAME NOT SPECIFIED [Concomitant]
     Dosage: 10 MG (MILLIGRAM),

REACTIONS (5)
  - Fatigue [Unknown]
  - Dizziness [Unknown]
  - Presyncope [Recovering/Resolving]
  - Malaise [Not Recovered/Not Resolved]
  - Confusional state [Unknown]

NARRATIVE: CASE EVENT DATE: 20200916
